FAERS Safety Report 5673470-9 (Version None)
Quarter: 2008Q1

REPORT INFORMATION
  Report Type: 
  Country: None (occurrence: None)
  Receive Date: 20080319
  Receipt Date: 20080307
  Transmission Date: 20080703
  Serious: Yes (Other)
  Sender: FDA-Public Use
  Company Number: BR-ROCHE-500553

PATIENT
  Sex: Female
  Weight: 3.5 kg

DRUGS (1)
  1. ROACUTAN [Suspect]
     Indication: ACNE
     Dosage: IT WAS REPORTED THAT THE MOTHER DID NOT TAKE ISOTRETINOIN ACCORDING TO THE MEDICAL PRESCRIPTION IN +
     Dates: start: 20060901, end: 20070201

REACTIONS (2)
  - NO ADVERSE EVENT [None]
  - NORMAL NEWBORN [None]
